FAERS Safety Report 6555739-9 (Version None)
Quarter: 2010Q1

REPORT INFORMATION
  Report Type: 
  Country: None (occurrence: None)
  Receive Date: 20100128
  Receipt Date: 20100105
  Transmission Date: 20100710
  Serious: Yes (Other)
  Sender: FDA-Public Use
  Company Number: PHEH2009US06692

PATIENT
  Sex: Male

DRUGS (5)
  1. TEGRETOL-XR [Suspect]
     Dosage: 1000 MG, TID
     Route: 048
     Dates: start: 20010101
  2. PHENOBARBITAL SRT [Concomitant]
     Dosage: UNK
  3. ZYPREXA [Concomitant]
     Dosage: UNK
  4. ATIVAN [Concomitant]
     Dosage: UNK
  5. ARTANE [Concomitant]

REACTIONS (6)
  - BLOOD COUNT ABNORMAL [None]
  - DIARRHOEA [None]
  - DRUG LEVEL INCREASED [None]
  - HALLUCINATION [None]
  - HALLUCINATION, AUDITORY [None]
  - MENTAL STATUS CHANGES [None]
